FAERS Safety Report 8997764 (Version 1)
Quarter: 2013Q1

REPORT INFORMATION
  Report Type: Report from Study
  Country: US (occurrence: US)
  Receive Date: 20130104
  Receipt Date: 20130104
  Transmission Date: 20140127
  Serious: Yes (Other)
  Sender: FDA-Public Use
  Company Number: US-ROCHE-1176563

PATIENT
  Age: 13 Month
  Sex: Male

DRUGS (3)
  1. GANCICLOVIR [Suspect]
     Indication: CYTOMEGALOVIRUS CHORIORETINITIS
     Dosage: FOR 11 MONTHS
     Route: 065
  2. GANCICLOVIR [Suspect]
     Dosage: TREATMENT APPROXIMATELY 4 YEARS
     Route: 065
  3. FOSCARNET [Concomitant]
     Indication: CYTOMEGALOVIRUS INFECTION
     Route: 065

REACTIONS (1)
  - Drug resistance [Unknown]
